FAERS Safety Report 4494048-9 (Version None)
Quarter: 2004Q4

REPORT INFORMATION
  Report Type: 
  Country: None (occurrence: None)
  Receive Date: 20041105
  Receipt Date: 20041028
  Transmission Date: 20050328
  Serious: Yes (Other)
  Sender: FDA-Public Use
  Company Number: US-JNJFOC-20041100267

PATIENT
  Sex: Female
  Weight: 97.52 kg

DRUGS (17)
  1. INFLIXIMAB [Suspect]
     Indication: RHEUMATOID ARTHRITIS
     Route: 042
  2. ENBREL [Concomitant]
  3. MULTI-VITAMIN [Concomitant]
  4. MULTI-VITAMIN [Concomitant]
  5. MULTI-VITAMIN [Concomitant]
  6. MULTI-VITAMIN [Concomitant]
  7. MULTI-VITAMIN [Concomitant]
  8. MULTI-VITAMIN [Concomitant]
  9. MULTI-VITAMIN [Concomitant]
  10. MULTI-VITAMIN [Concomitant]
  11. CALCIUM WITH VITAMIN D [Concomitant]
  12. CALCIUM WITH VITAMIN D [Concomitant]
  13. CALCIUM WITH VITAMIN D [Concomitant]
  14. ACETAMINOPHEN [Concomitant]
  15. VITAMIN C [Concomitant]
  16. POTASSIUM [Concomitant]
  17. FOSAMAX [Concomitant]

REACTIONS (1)
  - MOLE EXCISION [None]
